FAERS Safety Report 7889164-5 (Version None)
Quarter: 2011Q4

REPORT INFORMATION
  Report Type: 
  Country: None (occurrence: None)
  Receive Date: 20111103
  Receipt Date: 20111027
  Transmission Date: 20120403
  Serious: Yes (Hospitalization)
  Sender: FDA-Public Use
  Company Number: DK-PFIZER INC-2011262201

PATIENT
  Age: 61 Year
  Sex: Male
  Weight: 63 kg

DRUGS (2)
  1. SUNITINIB MALATE [Suspect]
     Indication: METASTATIC RENAL CELL CARCINOMA
     Dosage: 37.5 MG, 1X/DAY IN 13 DAYS THEN PAUSE IN 23 DAYS
     Dates: start: 20090421
  2. SUNITINIB MALATE [Suspect]
     Dosage: 25 MG, 1X/DAY IN 28 DAYS THEN PAUSE UNTIL DAY 42
     Dates: end: 20090614

REACTIONS (3)
  - VOMITING [None]
  - DEHYDRATION [None]
  - CONSTIPATION [None]
